FAERS Safety Report 5376354-9 (Version None)
Quarter: 2007Q3

REPORT INFORMATION
  Report Type: 
  Country: None (occurrence: None)
  Receive Date: 20070702
  Receipt Date: 20070620
  Transmission Date: 20080115
  Serious: Yes (Other)
  Sender: FDA-Public Use
  Company Number: US-PFIZER INC-2007033402

PATIENT
  Sex: Female
  Weight: 62.1 kg

DRUGS (6)
  1. CHANTIX [Suspect]
     Indication: SMOKING CESSATION THERAPY
     Route: 048
  2. LIPITOR [Concomitant]
  3. GLYCERYL TRINITRATE [Concomitant]
  4. PLAVIX [Concomitant]
  5. COREG [Concomitant]
  6. ALTACE [Concomitant]

REACTIONS (5)
  - ABNORMAL DREAMS [None]
  - DRUG INEFFECTIVE [None]
  - INSOMNIA [None]
  - NAUSEA [None]
  - STENT PLACEMENT [None]
